FAERS Safety Report 7301653-0 (Version None)
Quarter: 2011Q1

REPORT INFORMATION
  Report Type: 
  Country: None (occurrence: None)
  Receive Date: 20110218
  Receipt Date: 20110211
  Transmission Date: 20110831
  Serious: Yes (Life-Threatening, Hospitalization)
  Sender: FDA-Public Use
  Company Number: RO-ELI_LILLY_AND_COMPANY-RO201009007444

PATIENT
  Age: 45 Year
  Sex: Male

DRUGS (2)
  1. ZYPREXA [Suspect]
     Dosage: 800 MG, UNK
     Dates: start: 20101101
  2. ZYPREXA [Suspect]
     Indication: SCHIZOPHRENIA
     Dosage: 20 MG, DAILY (1/D)
     Route: 048

REACTIONS (6)
  - COMA [None]
  - OVERDOSE [None]
  - DYSPHORIA [None]
  - DYSPNOEA [None]
  - CHOREA [None]
  - AKATHISIA [None]
